FAERS Safety Report 7427338-8 (Version None)
Quarter: 2011Q2

REPORT INFORMATION
  Report Type: 
  Country: None (occurrence: None)
  Receive Date: 20110420
  Receipt Date: 20110414
  Transmission Date: 20111010
  Serious: Yes (Disabling)
  Sender: FDA-Public Use
  Company Number: CZ-CEPHALON-2011001923

PATIENT
  Sex: Male
  Weight: 62 kg

DRUGS (6)
  1. BENDAMUSTINE HCL [Suspect]
     Indication: MULTIPLE MYELOMA
     Route: 042
     Dates: start: 20110307, end: 20110310
  2. BORTEZOMIB [Suspect]
     Indication: MULTIPLE MYELOMA
     Route: 042
     Dates: start: 20110307, end: 20110314
  3. DEXAMETHASONE [Suspect]
     Indication: MULTIPLE MYELOMA
     Route: 048
     Dates: start: 20110307, end: 20110314
  4. ZOVIRAX [Concomitant]
     Dates: start: 20110307
  5. SUMETROLIM [Concomitant]
     Dates: start: 20110307
  6. DICLOFENAC [Concomitant]
     Dates: start: 20110317

REACTIONS (1)
  - AMAUROSIS [None]
